FAERS Safety Report 19843151 (Version 3)
Quarter: 2021Q4

REPORT INFORMATION
  Report Type: Report from Study
  Country: CO (occurrence: CO)
  Receive Date: 20210917
  Receipt Date: 20211109
  Transmission Date: 20220303
  Serious: Yes (Other)
  Sender: FDA-Public Use
  Company Number: CO-ABBVIE-21K-036-4081730-00

PATIENT
  Sex: Female
  Weight: 83 kg

DRUGS (4)
  1. HUMIRA [Suspect]
     Active Substance: ADALIMUMAB
     Indication: Psoriasis
     Route: 058
     Dates: start: 20210420, end: 2021
  2. HUMIRA [Suspect]
     Active Substance: ADALIMUMAB
     Indication: Psoriasis
     Route: 058
     Dates: start: 20210917
  3. METHOTREXATE [Concomitant]
     Active Substance: METHOTREXATE
     Indication: Psoriasis
     Dosage: ON SATURDAYS
     Route: 048
     Dates: start: 2016
  4. FOLIC ACID [Concomitant]
     Active Substance: FOLIC ACID
     Indication: Psoriasis
     Route: 048
     Dates: start: 2016

REACTIONS (19)
  - Disability [Not Recovered/Not Resolved]
  - Deafness [Not Recovered/Not Resolved]
  - Overweight [Recovering/Resolving]
  - Malaise [Recovering/Resolving]
  - Haemorrhage [Not Recovered/Not Resolved]
  - Product packaging issue [Unknown]
  - Device issue [Unknown]
  - Skin irritation [Recovering/Resolving]
  - Haemorrhage [Recovering/Resolving]
  - Skin disorder [Recovering/Resolving]
  - Burning sensation [Not Recovered/Not Resolved]
  - Pruritus [Not Recovered/Not Resolved]
  - Anxiety [Not Recovered/Not Resolved]
  - Feeling of despair [Not Recovered/Not Resolved]
  - Rash [Not Recovered/Not Resolved]
  - Discomfort [Recovering/Resolving]
  - Depressed mood [Recovering/Resolving]
  - Pruritus [Recovering/Resolving]
  - Psoriasis [Recovering/Resolving]

NARRATIVE: CASE EVENT DATE: 20210101
